FAERS Safety Report 18054527 (Version 1)
Quarter: 2020Q3

REPORT INFORMATION
  Report Type: Spontaneous
  Country: US (occurrence: US)
  Receive Date: 20200721
  Receipt Date: 20200721
  Transmission Date: 20201103
  Serious: No
  Sender: FDA-Public Use
  Company Number: None

PATIENT
  Age: 26 Year
  Sex: Female
  Weight: 88 kg

DRUGS (1)
  1. ELAGOLIX [Suspect]
     Active Substance: ELAGOLIX
     Indication: PAIN
     Dosage: ?          OTHER FREQUENCY:AM;?
     Route: 048
     Dates: start: 20190524, end: 20190605

REACTIONS (1)
  - Headache [None]

NARRATIVE: CASE EVENT DATE: 20190531
